FAERS Safety Report 4668164-2 (Version None)
Quarter: 2005Q2

REPORT INFORMATION
  Report Type: 
  Country: None (occurrence: None)
  Receive Date: 20050523
  Receipt Date: 20040923
  Transmission Date: 20051028
  Serious: Yes (Other)
  Sender: FDA-Public Use
  Company Number: PHEH2004US10316

PATIENT
  Age: 60 Year
  Sex: Female

DRUGS (21)
  1. PAMIDRONATE DISODIUM [Suspect]
     Dosage: 90 MG, QMO
     Dates: start: 19990901, end: 20010901
  2. ZOMETA [Suspect]
     Dosage: 4 MG, QMO
     Dates: start: 20011001
  3. THALIDOMIDE [Concomitant]
     Dates: start: 19990701
  4. PREDNISONE [Concomitant]
  5. ADRIAMYCIN PFS [Concomitant]
  6. CYTOXAN [Concomitant]
  7. ETOPOSIDE [Concomitant]
  8. DEXAMETHASONE [Concomitant]
  9. CLINICAL TRIAL WITH BORTEZOMIB [Concomitant]
  10. FUROSEMIDE [Concomitant]
     Dosage: 20 MG, BID
  11. FAMOTIDINE [Concomitant]
     Dosage: 40 MG, QD
  12. PAXIL [Concomitant]
     Dosage: 20 MG, QD
  13. WELLBUTRIN [Concomitant]
  14. ATIVAN [Concomitant]
     Dosage: 1 MG, PRN
  15. BACLOFEN [Concomitant]
     Dosage: UNK, PRN
  16. AMBIEN [Concomitant]
     Dosage: 10 MG, PRN
  17. DURAGESIC-100 [Concomitant]
     Dosage: 50 MCG/HR
  18. COMBIVENT [Concomitant]
  19. CALCIUM GLUCONATE [Concomitant]
  20. EPOGEN [Concomitant]
     Dosage: UNK, PRN
  21. PENICILLIN VK [Concomitant]
     Dosage: 500 MG, QD

REACTIONS (12)
  - BIOPSY MUCOSA ABNORMAL [None]
  - DENTAL CARIES [None]
  - HYPERBARIC OXYGEN THERAPY [None]
  - IMPAIRED HEALING [None]
  - INFLAMMATION [None]
  - MALIGNANT NEOPLASM PROGRESSION [None]
  - OSTEONECROSIS [None]
  - TOOTH EXTRACTION [None]
  - VERTEBRAL COLUMN MASS [None]
  - WOUND CLOSURE [None]
  - WOUND DEBRIDEMENT [None]
  - WOUND DEHISCENCE [None]
